FAERS Safety Report 4505628-6 (Version None)
Quarter: 2004Q4

REPORT INFORMATION
  Report Type: 
  Country: None (occurrence: None)
  Receive Date: 20041119
  Receipt Date: 20011025
  Transmission Date: 20050328
  Serious: Yes (Hospitalization)
  Sender: FDA-Public Use
  Company Number: US-MERCK-01104514

PATIENT
  Age: 68 Year
  Sex: Male
  Weight: 64 kg

DRUGS (11)
  1. VIOXX [Suspect]
     Indication: ARTHRITIS
     Route: 048
     Dates: start: 20001201, end: 20010101
  2. VIOXX [Suspect]
     Route: 048
     Dates: start: 19990824, end: 20001201
  3. AZULFIDINE [Concomitant]
     Indication: PSORIASIS
     Route: 065
     Dates: end: 19991122
  4. PRILOSEC [Concomitant]
     Route: 065
  5. ENBREL [Concomitant]
     Indication: ARTHRITIS
     Route: 065
     Dates: start: 20010101, end: 20010101
  6. ENBREL [Concomitant]
     Indication: PSORIASIS
     Route: 065
     Dates: start: 20010101, end: 20010101
  7. PREDNISONE [Concomitant]
     Route: 065
  8. PROZAC [Concomitant]
     Indication: DEPRESSION
     Route: 065
  9. PROZAC [Concomitant]
     Route: 065
  10. PROZAC [Concomitant]
     Route: 065
  11. TRAZODONE HYDROCHLORIDE [Concomitant]
     Indication: INSOMNIA
     Route: 065

REACTIONS (26)
  - ABDOMINAL PAIN UPPER [None]
  - AFFECT LABILITY [None]
  - ANAEMIA [None]
  - ATHEROSCLEROSIS [None]
  - BACK PAIN [None]
  - BLOOD CHOLESTEROL INCREASED [None]
  - CELLULITIS [None]
  - CEREBROVASCULAR ACCIDENT [None]
  - CHEST PAIN [None]
  - CORONARY ARTERY RESTENOSIS [None]
  - CORONARY ARTERY STENOSIS [None]
  - DIZZINESS POSTURAL [None]
  - FEELING ABNORMAL [None]
  - FLUID RETENTION [None]
  - GASTROINTESTINAL PAIN [None]
  - GASTROOESOPHAGEAL REFLUX DISEASE [None]
  - GROIN PAIN [None]
  - GYNAECOMASTIA [None]
  - HIATUS HERNIA [None]
  - HYPERTENSION [None]
  - MYOCARDIAL INFARCTION [None]
  - NEPHROLITHIASIS [None]
  - POST PROCEDURAL COMPLICATION [None]
  - PSORIATIC ARTHROPATHY [None]
  - RHINITIS SEASONAL [None]
  - THERAPEUTIC RESPONSE DECREASED [None]
